FAERS Safety Report 7666075-1 (Version None)
Quarter: 2011Q3

REPORT INFORMATION
  Report Type: 
  Country: None (occurrence: None)
  Receive Date: 20110806
  Receipt Date: 20110526
  Transmission Date: 20111222
  Serious: No
  Sender: FDA-Public Use
  Company Number: US-ABBOTT-11P-163-0728708-00

PATIENT
  Sex: Female
  Weight: 59.02 kg

DRUGS (12)
  1. FOSAMAX [Concomitant]
     Indication: PRODUCT USED FOR UNKNOWN INDICATION
  2. PEPCID [Concomitant]
     Indication: PRODUCT USED FOR UNKNOWN INDICATION
  3. FISH OIL [Concomitant]
     Indication: PRODUCT USED FOR UNKNOWN INDICATION
  4. CRESTOR [Suspect]
     Indication: PRODUCT USED FOR UNKNOWN INDICATION
  5. GLUCOSAMINE CHONDROITIN [Concomitant]
     Indication: PRODUCT USED FOR UNKNOWN INDICATION
  6. FLAVONOID [Concomitant]
     Indication: PRODUCT USED FOR UNKNOWN INDICATION
  7. CALCIUM + VITAMIN D [Concomitant]
     Indication: PRODUCT USED FOR UNKNOWN INDICATION
  8. NIASPAN [Suspect]
     Indication: BLOOD CHOLESTEROL INCREASED
     Dosage: AT BEDTIME
     Dates: start: 20100101
  9. LOVAZA [Concomitant]
     Indication: PRODUCT USED FOR UNKNOWN INDICATION
  10. NIASPAN [Suspect]
  11. CEBTRUM [Concomitant]
     Indication: PRODUCT USED FOR UNKNOWN INDICATION
  12. LIPITOR [Suspect]
     Indication: PRODUCT USED FOR UNKNOWN INDICATION

REACTIONS (2)
  - FLUSHING [None]
  - PRESYNCOPE [None]
